FAERS Safety Report 5835101-4 (Version None)
Quarter: 2008Q3

REPORT INFORMATION
  Report Type: 
  Country: None (occurrence: None)
  Receive Date: 20080805
  Receipt Date: 20080805
  Transmission Date: 20090109
  Serious: Yes (Other)
  Sender: FDA-Public Use
  Company Number: None

PATIENT
  Age: 46 Year
  Sex: Female

DRUGS (4)
  1. REYATAZ [Suspect]
     Indication: HIV INFECTION
     Dosage: 300 MG DAILY PO
     Route: 048
     Dates: start: 20080603, end: 20080804
  2. REYATAZ [Suspect]
  3. NORVIR [Concomitant]
  4. ATRIPLA [Concomitant]

REACTIONS (1)
  - ALOPECIA [None]
